FAERS Safety Report 7058437-0 (Version None)
Quarter: 2010Q4

REPORT INFORMATION
  Report Type: 
  Country: None (occurrence: None)
  Receive Date: 20101021
  Receipt Date: 20101021
  Transmission Date: 20110411
  Serious: No
  Sender: FDA-Public Use
  Company Number: None

PATIENT
  Age: 93 Year
  Sex: Female
  Weight: 52 kg

DRUGS (11)
  1. CLINDAMYCIN [Suspect]
     Dosage: 900 MG Q8H IV
     Route: 042
     Dates: start: 20100723, end: 20100724
  2. XANAX [Concomitant]
  3. ADVAIR DISKUS 100/50 [Concomitant]
  4. COUMADIN [Concomitant]
  5. LASIX [Concomitant]
  6. NORVASC [Concomitant]
  7. PRILOSEC [Concomitant]
  8. SPIRIVA [Concomitant]
  9. TOPROL-XL [Concomitant]
  10. VIT D [Concomitant]
  11. ZESTRIL [Concomitant]

REACTIONS (1)
  - RASH [None]
